FAERS Safety Report 13601413 (Version 1)
Quarter: 2017Q2

REPORT INFORMATION
  Report Type: Spontaneous
  Country: US (occurrence: US)
  Receive Date: 20170601
  Receipt Date: 20170601
  Transmission Date: 20170830
  Serious: Yes (Other)
  Sender: FDA-Public Use
  Company Number: None

PATIENT
  Sex: Female
  Weight: 29.7 kg

DRUGS (1)
  1. FORTEO [Suspect]
     Active Substance: TERIPARATIDE
     Indication: OSTEITIS DEFORMANS
     Route: 058

REACTIONS (9)
  - Injection site rash [None]
  - Injection site swelling [None]
  - Injection site bruising [None]
  - Injection site reaction [None]
  - Injection site pain [None]
  - Injection site pruritus [None]
  - Vein disorder [None]
  - Injection site erythema [None]
  - Muscle spasms [None]
